FAERS Safety Report 9526804 (Version 1)
Quarter: 2013Q3

REPORT INFORMATION
  Report Type: Spontaneous
  Country: IT (occurrence: IT)
  Receive Date: 20130916
  Receipt Date: 20130916
  Transmission Date: 20140515
  Serious: Yes (Other)
  Sender: FDA-Public Use
  Company Number: IT-GLAXOSMITHKLINE-B0922199A

PATIENT
  Age: 71 Year
  Sex: Female

DRUGS (7)
  1. ARIXTRA [Suspect]
     Indication: ATRIAL FIBRILLATION
     Route: 058
     Dates: start: 20130717, end: 20130821
  2. COUMADIN [Suspect]
     Indication: ATRIAL FIBRILLATION
     Route: 048
     Dates: start: 20130717, end: 20130821
  3. SEQUACOR [Concomitant]
     Route: 048
  4. OMEPRAZEN [Concomitant]
     Route: 048
  5. LASIX [Concomitant]
     Route: 048
  6. LOSAZID [Concomitant]
     Route: 048
  7. EN [Concomitant]
     Route: 048

REACTIONS (1)
  - Arterial haemorrhage [Recovering/Resolving]
